FAERS Safety Report 15029038 (Version 1)
Quarter: 2018Q2

REPORT INFORMATION
  Report Type: Spontaneous
  Country: JP (occurrence: JP)
  Receive Date: 20180619
  Receipt Date: 20180619
  Transmission Date: 20180711
  Serious: Yes (Other)
  Sender: FDA-Public Use
  Company Number: JP-PFIZER INC-2018241769

PATIENT
  Age: 8 Decade
  Sex: Female

DRUGS (3)
  1. PAXIL [Concomitant]
     Active Substance: PAROXETINE HYDROCHLORIDE
  2. CONSTAN /00595201/ [Concomitant]
     Active Substance: ALPRAZOLAM
  3. HALCION [Suspect]
     Active Substance: TRIAZOLAM
     Dosage: UNK

REACTIONS (7)
  - Negative thoughts [Unknown]
  - Dyscalculia [Unknown]
  - Disorientation [Unknown]
  - Persecutory delusion [Unknown]
  - Regressive behaviour [Unknown]
  - Dependence [Unknown]
  - Illness anxiety disorder [Unknown]
